FAERS Safety Report 18505091 (Version 1)
Quarter: 2020Q4

REPORT INFORMATION
  Report Type: Spontaneous
  Country: US (occurrence: US)
  Receive Date: 20201116
  Receipt Date: 20201116
  Transmission Date: 20210114
  Serious: Yes (Other)
  Sender: FDA-Public Use
  Company Number: US-009507513-2011USA006366

PATIENT

DRUGS (2)
  1. INLYTA [Concomitant]
     Active Substance: AXITINIB
     Indication: RENAL CANCER
     Dosage: 5 MILLIGRAM
  2. KEYTRUDA [Suspect]
     Active Substance: PEMBROLIZUMAB
     Dosage: UNK

REACTIONS (1)
  - Adverse drug reaction [Unknown]
